FAERS Safety Report 7805353-X (Version None)
Quarter: 2011Q4

REPORT INFORMATION
  Report Type: 
  Country: None (occurrence: None)
  Receive Date: 20111010
  Receipt Date: 20110927
  Transmission Date: 20120403
  Serious: Yes (Hospitalization)
  Sender: FDA-Public Use
  Company Number: IT-MYLANLABS-2011S1020383

PATIENT
  Age: 10 Year
  Sex: Female

DRUGS (3)
  1. BACLOFEN [Suspect]
     Indication: MUSCLE SPASTICITY
     Dosage: 1 MG/KG/D IN THREE DIVIDED DOSES
     Route: 048
  2. BACLOFEN [Suspect]
     Dosage: 2 MG/KG/D (60 MG/D) IN THREE DIVIDED DOSES
     Route: 048
  3. CARBAMAZEPINE [Concomitant]
     Indication: CONVULSION

REACTIONS (5)
  - HYPOREFLEXIA [None]
  - HYPOTONIA [None]
  - CONFUSIONAL STATE [None]
  - AGITATION [None]
  - ELECTROENCEPHALOGRAM ABNORMAL [None]
